FAERS Safety Report 4499751-2 (Version None)
Quarter: 2004Q4

REPORT INFORMATION
  Report Type: 
  Country: None (occurrence: None)
  Receive Date: 20041108
  Receipt Date: 20041025
  Transmission Date: 20050328
  Serious: Yes (Hospitalization)
  Sender: FDA-Public Use
  Company Number: 2004GB02539

PATIENT
  Age: 51 Year
  Sex: Female

DRUGS (4)
  1. ATENOLOL [Suspect]
     Indication: HYPERTENSION
     Dosage: 100 MG DAILY PO
     Route: 048
     Dates: end: 20041006
  2. DICLOFENAC [Suspect]
     Indication: ARTHRITIS
     Dosage: 50 MG DAILY PO
     Route: 048
     Dates: start: 20020101, end: 20041006
  3. LISINOPRIL [Concomitant]
  4. ASPIRIN [Concomitant]

REACTIONS (2)
  - CHEST PAIN [None]
  - DYSPNOEA [None]
